FAERS Safety Report 14698530 (Version 2)
Quarter: 2018Q2

REPORT INFORMATION
  Report Type: Report from Study
  Country: DE (occurrence: DE)
  Receive Date: 20180330
  Receipt Date: 20180405
  Transmission Date: 20180711
  Serious: Yes (Death, Other)
  Sender: FDA-Public Use
  Company Number: DE-BRISTOL-MYERS SQUIBB COMPANY-BMS-2018-029497

PATIENT
  Age: 79 Year
  Sex: Male

DRUGS (1)
  1. NIVOLUMAB [Suspect]
     Active Substance: NIVOLUMAB
     Indication: RENAL CELL CARCINOMA
     Dosage: 3 MG/KG, Q2WK
     Route: 042
     Dates: start: 20180213, end: 20180218

REACTIONS (1)
  - Death [Fatal]

NARRATIVE: CASE EVENT DATE: 20180218
